FAERS Safety Report 9311812 (Version 1)
Quarter: 2013Q2

REPORT INFORMATION
  Report Type: Spontaneous
  Country: FR (occurrence: FR)
  Receive Date: 20130528
  Receipt Date: 20130528
  Transmission Date: 20140414
  Serious: Yes (Other)
  Sender: FDA-Public Use
  Company Number: PHHY2013FR033290

PATIENT
  Age: 65 Year
  Sex: Male

DRUGS (2)
  1. COTAREG [Suspect]
     Indication: HYPERTENSION
     Dosage: 1 DF (160 MG VALS AND 12.5 MG HCTZ), QD
     Route: 048
     Dates: start: 2012, end: 201206
  2. ZOFENOPRIL [Concomitant]
     Dosage: 1 DF, QD

REACTIONS (6)
  - Lichenoid keratosis [Unknown]
  - Pigmentation disorder [Not Recovered/Not Resolved]
  - Acanthosis [Unknown]
  - Lymphocytic infiltration [Unknown]
  - Ichthyosis [Unknown]
  - Toxic skin eruption [Unknown]
